FAERS Safety Report 4392330-7 (Version None)
Quarter: 2004Q3

REPORT INFORMATION
  Report Type: 
  Country: None (occurrence: None)
  Receive Date: 20040702
  Receipt Date: 20040219
  Transmission Date: 20050211
  Serious: Yes (Other)
  Sender: FDA-Public Use
  Company Number: 2004UW02982

PATIENT
  Age: 74 Year
  Sex: Female
  Weight: 68.0396 kg

DRUGS (9)
  1. CRESTOR [Suspect]
     Indication: BLOOD CHOLESTEROL INCREASED
     Dosage: 10 MG QOD PO
     Route: 048
     Dates: start: 20040202
  2. ATACAND [Concomitant]
  3. SYNTHROID [Concomitant]
  4. NEXIUM [Concomitant]
  5. EVISTA [Concomitant]
  6. AMITRIPTYLINE HCL [Concomitant]
  7. ASPIRIN [Concomitant]
  8. MULTIVITAMIN [Concomitant]
  9. HERBS [Concomitant]

REACTIONS (1)
  - PHARYNGOLARYNGEAL PAIN [None]
